FAERS Safety Report 7451932-1 (Version None)
Quarter: 2011Q2

REPORT INFORMATION
  Report Type: 
  Country: None (occurrence: None)
  Receive Date: 20110425
  Receipt Date: 20110412
  Transmission Date: 20111010
  Serious: Yes (Other)
  Sender: FDA-Public Use
  Company Number: 031077

PATIENT
  Age: 49 Year
  Sex: Male

DRUGS (1)
  1. LACOSAMIDE [Suspect]
     Dates: start: 20090101

REACTIONS (3)
  - SOMNOLENCE [None]
  - RENAL IMPAIRMENT [None]
  - RASH [None]
